FAERS Safety Report 25970577 (Version 2)
Quarter: 2025Q4

REPORT INFORMATION
  Report Type: Report from Study
  Country: CH (occurrence: CH)
  Receive Date: 20251028
  Receipt Date: 20251214
  Transmission Date: 20260117
  Serious: Yes (Other)
  Sender: TAKEDA
  Company Number: CH-TAKEDA-2025TUS076618

PATIENT
  Age: 30 Year
  Sex: Female
  Weight: 87 kg

DRUGS (5)
  1. APADAMTASE ALFA [Suspect]
     Active Substance: APADAMTASE ALFA
     Indication: Congenital thrombotic thrombocytopenic purpura
     Dosage: 40 INTERNATIONAL UNIT/KILOGRAM, Q2WEEKS
  2. APADAMTASE ALFA [Suspect]
     Active Substance: APADAMTASE ALFA
     Dosage: 40 INTERNATIONAL UNIT/KILOGRAM, Q2WEEKS
  3. APADAMTASE ALFA [Suspect]
     Active Substance: APADAMTASE ALFA
     Dosage: 3500 INTERNATIONAL UNIT, Q2WEEKS
     Dates: start: 20250724
  4. APADAMTASE ALFA [Suspect]
     Active Substance: APADAMTASE ALFA
     Dosage: 1500 INTERNATIONAL UNIT, Q2WEEKS
  5. APADAMTASE ALFA [Suspect]
     Active Substance: APADAMTASE ALFA
     Dosage: 500 INTERNATIONAL UNIT, Q2WEEKS

REACTIONS (5)
  - Laryngospasm [Recovered/Resolved]
  - Inappropriate schedule of product administration [Unknown]
  - Pregnancy [Unknown]
  - Tachycardia [Recovered/Resolved]
  - Blood pressure increased [Recovered/Resolved]

NARRATIVE: CASE EVENT DATE: 20250811
